FAERS Safety Report 7247240-4 (Version None)
Quarter: 2011Q1

REPORT INFORMATION
  Report Type: 
  Country: None (occurrence: None)
  Receive Date: 20110127
  Receipt Date: 20101207
  Transmission Date: 20110831
  Serious: Yes (Hospitalization)
  Sender: FDA-Public Use
  Company Number: IT-BAYER-201046823GPV

PATIENT
  Sex: Male

DRUGS (4)
  1. ANTRA [Suspect]
     Indication: PRODUCT USED FOR UNKNOWN INDICATION
     Dosage: 20 MG (DAILY DOSE), , ORAL
     Route: 048
  2. ASPIRIN [Suspect]
     Indication: SUPRAVENTRICULAR TACHYCARDIA
     Route: 048
     Dates: start: 20091211, end: 20100307
  3. TORVAST [Suspect]
     Indication: PRODUCT USED FOR UNKNOWN INDICATION
     Dosage: 20 MG (DAILY DOSE), , ORAL
     Route: 048
  4. ISOPTIN [Concomitant]
     Dosage: 240 MG (DAILY DOSE), , ORAL
     Route: 048
     Dates: start: 20091211

REACTIONS (3)
  - OEDEMA PERIPHERAL [None]
  - URTICARIA [None]
  - PRURITUS [None]
